FAERS Safety Report 17473115 (Version 1)
Quarter: 2020Q1

REPORT INFORMATION
  Report Type: Report from Study
  Country: CA (occurrence: CA)
  Receive Date: 20200228
  Receipt Date: 20200228
  Transmission Date: 20200409
  Serious: Yes (Other)
  Sender: FDA-Public Use
  Company Number: NVSC2020CA056768

PATIENT
  Sex: Female

DRUGS (1)
  1. CLARITHROMYCIN. [Suspect]
     Active Substance: CLARITHROMYCIN
     Indication: CHRONIC SPONTANEOUS URTICARIA
     Dosage: 1 DF (500 MG), BID
     Route: 048

REACTIONS (18)
  - Facial paralysis [Recovering/Resolving]
  - Macule [Unknown]
  - Infection [Unknown]
  - Skin hypertrophy [Unknown]
  - Palpitations [Unknown]
  - Lip swelling [Unknown]
  - Blister [Recovering/Resolving]
  - Lip haematoma [Unknown]
  - Chronic spontaneous urticaria [Unknown]
  - Perivascular dermatitis [Unknown]
  - Cyst [Unknown]
  - Traumatic haematoma [Unknown]
  - Oral herpes [Unknown]
  - Rash [Unknown]
  - Denture stomatitis [Unknown]
  - Oropharyngeal discomfort [Unknown]
  - Swelling [Unknown]
  - Pruritus [Unknown]
